FAERS Safety Report 5370521-6 (Version None)
Quarter: 2007Q2

REPORT INFORMATION
  Report Type: 
  Country: None (occurrence: None)
  Receive Date: 20070625
  Receipt Date: 20070625
  Transmission Date: 20071010
  Serious: No
  Sender: FDA-Public Use
  Company Number: None

PATIENT
  Age: 55 Year
  Sex: Female
  Weight: 54.4316 kg

DRUGS (1)
  1. CHANTIX [Suspect]
     Indication: SMOKING CESSATION THERAPY
     Dosage: 1 MG 2 TIMES A DAY PO
     Route: 048
     Dates: start: 20070302, end: 20070612

REACTIONS (2)
  - ARTHRALGIA [None]
  - JOINT STIFFNESS [None]
